FAERS Safety Report 6206062-3 (Version None)
Quarter: 2009Q2

REPORT INFORMATION
  Report Type: 
  Country: None (occurrence: None)
  Receive Date: 20090528
  Receipt Date: 20090522
  Transmission Date: 20091009
  Serious: Yes (Other)
  Sender: FDA-Public Use
  Company Number: BR-BAYER-200916723LA

PATIENT
  Age: 38 Year
  Sex: Female

DRUGS (3)
  1. BETAFERON [Suspect]
     Indication: MULTIPLE SCLEROSIS
     Dosage: TOTAL DAILY DOSE: 9.6 MIU
     Route: 058
     Dates: start: 20050101
  2. RIVOTRIL [Concomitant]
     Indication: INSOMNIA
     Dosage: 6 DROPS PER DAY
     Route: 048
     Dates: start: 20060101
  3. DIAMOX [Concomitant]
     Indication: HYPERTENSION
     Route: 048
     Dates: start: 20040101

REACTIONS (5)
  - ABDOMINAL DISTENSION [None]
  - APPETITE DISORDER [None]
  - FOOD INTOLERANCE [None]
  - HEPATIC STEATOSIS [None]
  - NAUSEA [None]
